FAERS Safety Report 8160476-3 (Version None)
Quarter: 2012Q1

REPORT INFORMATION
  Report Type: 
  Country: None (occurrence: None)
  Receive Date: 20120223
  Receipt Date: 20120216
  Transmission Date: 20120608
  Serious: Yes (Death, Hospitalization)
  Sender: FDA-Public Use
  Company Number: US-BAXTER-2012BH004452

PATIENT
  Sex: Female

DRUGS (6)
  1. DIANEAL [Suspect]
     Indication: PERITONEAL DIALYSIS
     Route: 033
     Dates: start: 20110701, end: 20120101
  2. DIANEAL [Suspect]
     Route: 033
     Dates: start: 20110701, end: 20120101
  3. DIANEAL [Suspect]
     Route: 033
     Dates: start: 20110701, end: 20120101
  4. DIANEAL [Suspect]
     Route: 033
     Dates: start: 20110701, end: 20120101
  5. DIANEAL [Suspect]
     Route: 033
     Dates: start: 20110701, end: 20120101
  6. DIANEAL [Suspect]
     Indication: PERITONEAL DIALYSIS
     Route: 033
     Dates: start: 20110701, end: 20120101

REACTIONS (3)
  - FUNGAL PERITONITIS [None]
  - PERITONITIS BACTERIAL [None]
  - DEATH [None]
